FAERS Safety Report 5301832-8 (Version None)
Quarter: 2007Q2

REPORT INFORMATION
  Report Type: 
  Country: None (occurrence: None)
  Receive Date: 20070416
  Receipt Date: 20070416
  Transmission Date: 20071010
  Serious: Yes (Other)
  Sender: FDA-Public Use
  Company Number: None

PATIENT
  Age: 59 Year
  Sex: Male
  Weight: 112.0385 kg

DRUGS (10)
  1. QUETIAPINE FUMARATE [Suspect]
     Indication: AFFECT LABILITY
     Dosage: 1000MG QHS PO
     Route: 048
  2. QUETIAPINE FUMARATE [Suspect]
     Indication: PSYCHOTIC DISORDER
     Dosage: 1000MG QHS PO
     Route: 048
  3. DIVALPROEX SODIUM [Suspect]
     Indication: AFFECT LABILITY
     Dosage: 1000MG BID PO
     Route: 048
  4. LORAZEPAM [Concomitant]
  5. TOPIRAMATE [Concomitant]
  6. PANTOPRAZOLE [Concomitant]
  7. OMEGA 3 FISH OIL [Concomitant]
  8. HYDROCHLOROTHIAZIDE [Concomitant]
  9. ENALAPRIL [Concomitant]
  10. ATORVASTATIN CALCIUM [Concomitant]

REACTIONS (6)
  - CONFUSIONAL STATE [None]
  - DRUG INTERACTION [None]
  - DYSARTHRIA [None]
  - GAIT DISTURBANCE [None]
  - LETHARGY [None]
  - SEDATION [None]
